FAERS Safety Report 5920401-X (Version None)
Quarter: 2008Q4

REPORT INFORMATION
  Report Type: 
  Country: None (occurrence: None)
  Receive Date: 20081014
  Receipt Date: 20080918
  Transmission Date: 20090506
  Serious: Yes (Life-Threatening, Hospitalization)
  Sender: FDA-Public Use
  Company Number: 2008S1003054

PATIENT
  Age: 65 Year
  Sex: Male

DRUGS (18)
  1. CITALOPRAM HYDROBROMIDE [Suspect]
     Indication: DRUG USE FOR UNKNOWN INDICATION
     Dosage: 10 MG;
  2. METHYLENE BLUE (METHYLTHIONINIUM CHLORIDE) [Suspect]
     Indication: DRUG USE FOR UNKNOWN INDICATION
     Dosage: 7.5 MG/KG; ;UNKNOWN
  3. ALFACALCIDOL [Concomitant]
  4. ALUMINUM HYDROXIDE GEL [Concomitant]
  5. ATORVASTATIN [Concomitant]
  6. CLOPIDOGREL [Concomitant]
  7. INSULIN [Concomitant]
  8. OMEPRAZOLE [Concomitant]
  9. QUININE SULPHATE [Concomitant]
  10. SILDENAFIL CITRATE [Concomitant]
  11. ATRACURIUM BESYLATE [Concomitant]
  12. FENTANYL CITRATE [Concomitant]
  13. NITROUS OXIDE [Concomitant]
  14. OXYGEN [Concomitant]
  15. PROPOFOL [Concomitant]
  16. REMIFENTANIL [Concomitant]
  17. SEVOFLURANE [Concomitant]
  18. MORPHINE [Concomitant]

REACTIONS (6)
  - DEPRESSED LEVEL OF CONSCIOUSNESS [None]
  - DISORIENTATION [None]
  - DRUG INTERACTION [None]
  - HYPERCAPNIA [None]
  - HYPERKALAEMIA [None]
  - SEROTONIN SYNDROME [None]
